FAERS Safety Report 6481557-6 (Version None)
Quarter: 2009Q4

REPORT INFORMATION
  Report Type: 
  Country: None (occurrence: None)
  Receive Date: 20091123
  Receipt Date: 20090806
  Transmission Date: 20100525
  Serious: No
  Sender: FDA-Public Use
  Company Number: 8047607

PATIENT
  Age: 54 Year
  Sex: Female
  Weight: 122.4 kg

DRUGS (14)
  1. CIMZIA [Suspect]
     Indication: CROHN'S DISEASE
     Dosage: 400 MG SC
     Route: 058
     Dates: start: 20090513, end: 20090521
  2. PENTASA [Concomitant]
  3. DICYCLOMINE [Concomitant]
  4. PREDNISONE [Concomitant]
  5. NEXIUM [Concomitant]
  6. COZAAR [Concomitant]
  7. PROMETHAZINE [Concomitant]
  8. FUROSEMIDE [Concomitant]
  9. FOLIC ACID [Concomitant]
  10. MIRTAZAPINE [Concomitant]
  11. CYMBALTA [Concomitant]
  12. DOXEPIN HCL [Concomitant]
  13. QVAR 40 [Concomitant]
  14. ALBUTEROL [Concomitant]

REACTIONS (4)
  - CROHN'S DISEASE [None]
  - OEDEMA PERIPHERAL [None]
  - PSORIASIS [None]
  - RASH [None]
